FAERS Safety Report 25021984 (Version 1)
Quarter: 2025Q1

REPORT INFORMATION
  Report Type: Spontaneous
  Country: US (occurrence: US)
  Receive Date: 20250228
  Receipt Date: 20250228
  Transmission Date: 20250408
  Serious: No
  Sender: DR REDDYS
  Company Number: US-DRL-USA-USA/2025/02/002770

PATIENT
  Age: 19 Year
  Sex: Female

DRUGS (1)
  1. ACCUTANE [Suspect]
     Active Substance: ISOTRETINOIN
     Indication: Acne
     Dosage: QUANTITY: 30
     Route: 065

REACTIONS (2)
  - Papule [Unknown]
  - Xerosis [Unknown]

NARRATIVE: CASE EVENT DATE: 20250108
